FAERS Safety Report 25076916 (Version 2)
Quarter: 2025Q1

REPORT INFORMATION
  Report Type: Report from Study
  Country: SE (occurrence: SE)
  Receive Date: 20250314
  Receipt Date: 20250327
  Transmission Date: 20250408
  Serious: Yes (Other)
  Sender: ABBVIE
  Company Number: SE-ABBVIE-6146875

PATIENT
  Age: 71 Year
  Sex: Male

DRUGS (4)
  1. FOSCARBIDOPA\FOSLEVODOPA [Suspect]
     Active Substance: FOSCARBIDOPA\FOSLEVODOPA
     Indication: Parkinson^s disease
     Route: 058
     Dates: start: 20250203
  2. FOSCARBIDOPA\FOSLEVODOPA [Suspect]
     Active Substance: FOSCARBIDOPA\FOSLEVODOPA
     Route: 058
     Dates: start: 20250321
  3. NEUPRO [Concomitant]
     Active Substance: ROTIGOTINE
     Indication: Parkinson^s disease
     Dates: end: 20250221
  4. NEUPRO [Concomitant]
     Active Substance: ROTIGOTINE
     Indication: Parkinson^s disease
     Dates: start: 20250221

REACTIONS (10)
  - Upper limb fracture [Recovering/Resolving]
  - Joint injury [Unknown]
  - Road traffic accident [Unknown]
  - Dizziness [Not Recovered/Not Resolved]
  - Therapeutic product effect delayed [Unknown]
  - Underdose [Recovering/Resolving]
  - Musculoskeletal stiffness [Unknown]
  - Tremor [Unknown]
  - Balance disorder [Not Recovered/Not Resolved]
  - Walking aid user [Unknown]

NARRATIVE: CASE EVENT DATE: 20250101
